FAERS Safety Report 22358430 (Version 1)
Quarter: 2023Q2

REPORT INFORMATION
  Report Type: Other
  Country: ES (occurrence: ES)
  Receive Date: 20230524
  Receipt Date: 20230524
  Transmission Date: 20230721
  Serious: Yes (Hospitalization)
  Sender: FDA-Public Use
  Company Number: ES-ALVOGEN-2023091521

PATIENT
  Age: 61 Year
  Sex: Female

DRUGS (2)
  1. FLECAINIDE [Suspect]
     Active Substance: FLECAINIDE
     Indication: Accessory cardiac pathway
     Dosage: STRENGTH: 100 MG
     Dates: start: 1991
  2. FLECAINIDE [Suspect]
     Active Substance: FLECAINIDE
     Indication: Accessory cardiac pathway
     Dates: start: 2021

REACTIONS (12)
  - Toxicity to various agents [Unknown]
  - Ventricular dysfunction [Recovered/Resolved]
  - Bundle branch block left [Recovered/Resolved]
  - Left ventricular dilatation [Recovered/Resolved]
  - Ejection fraction decreased [Recovered/Resolved]
  - Ventricular dyssynchrony [Recovered/Resolved]
  - Electrocardiogram T wave abnormal [Recovered/Resolved]
  - Electrocardiogram QRS complex shortened [Recovered/Resolved]
  - Electrocardiogram QT prolonged [Recovered/Resolved]
  - Sinus tachycardia [Recovered/Resolved]
  - Electrocardiogram QRS complex prolonged [Recovered/Resolved]
  - Sinus bradycardia [Recovered/Resolved]
